FAERS Safety Report 10220714 (Version 4)
Quarter: 2014Q4

REPORT INFORMATION
  Report Type: Spontaneous
  Country: US (occurrence: US)
  Receive Date: 20140606
  Receipt Date: 20141001
  Transmission Date: 20150528
  Serious: Yes (Death, Hospitalization, Other)
  Sender: FDA-Public Use
  Company Number: US-PFIZER INC-2014154583

PATIENT
  Age: 67 Year
  Sex: Female
  Weight: 74.38 kg

DRUGS (52)
  1. PREDNISONE. [Concomitant]
     Active Substance: PREDNISONE
     Dosage: 10 MG, DAILY (FOR 7 DAYS THEN STOP)
  2. HYDROXYCHLOROQUINE SULFATE. [Concomitant]
     Active Substance: HYDROXYCHLOROQUINE SULFATE
     Dosage: 200 MG, 2X/DAY
     Route: 048
     Dates: start: 20140224
  3. FOLIC ACID. [Concomitant]
     Active Substance: FOLIC ACID
     Dosage: 1 MG, 4X/DAY (1 (ONE) TABLET (ORAL) FOUR TIMES DAILY)
     Route: 048
     Dates: start: 20140120
  4. FOLIC ACID. [Concomitant]
     Active Substance: FOLIC ACID
     Dosage: 2 MG, DAILY
     Route: 048
  5. RESTORIL [Concomitant]
     Active Substance: TEMAZEPAM
     Dosage: 30 MG, AS NEEDED (BEDTIME, AS NEEDED)
     Route: 048
     Dates: start: 20130821
  6. TRAMADOL [Concomitant]
     Active Substance: TRAMADOL
     Indication: PAIN
     Dosage: 25 MG, AS NEEDED (EVERY 6 HOURS AS NEEDED)
     Route: 048
  7. TRAMADOL [Concomitant]
     Active Substance: TRAMADOL
     Dosage: 50 MG, AS NEEDED (EVERY 6 HOURS P.R.N)
     Route: 048
  8. NORCO [Concomitant]
     Active Substance: ACETAMINOPHEN\HYDROCODONE BITARTRATE
     Indication: PAIN
     Dosage: UNK, (10/325 MG, 2 TABLETS P.O EVERY 4-6 HOURS AS NEEDED)
     Route: 048
  9. LEVETIRACETAM. [Concomitant]
     Active Substance: LEVETIRACETAM
     Dosage: 500 MG, 2X/DAY (EVERY 12 HOURS)
     Route: 048
  10. TEMAZEPAM. [Concomitant]
     Active Substance: TEMAZEPAM
     Indication: SLEEP DISORDER
     Dosage: 7.5 MG, AS NEEDED (Q.H.S. P.R.N.)
  11. ALPRAZOLAM. [Concomitant]
     Active Substance: ALPRAZOLAM
     Dosage: 0.5 MG, 2X/DAY (2 TIMES PER DAY)
     Route: 048
  12. ROFLUMILAST [Concomitant]
     Active Substance: ROFLUMILAST
     Indication: DYSPNOEA
     Dosage: 500 UG, DAILY
     Route: 048
  13. PREDNISONE. [Concomitant]
     Active Substance: PREDNISONE
     Dosage: 15 MG, DAILY (5MG TABLET, 3 (THREE) TABLET (ORAL) DAILY FOR 30 DAYS)
     Route: 048
     Dates: start: 20140325
  14. PREDNISONE. [Concomitant]
     Active Substance: PREDNISONE
     Dosage: 40 MG, DAILY (EVERY DAY)
     Route: 048
  15. METHOTREXATE [Concomitant]
     Active Substance: METHOTREXATE
     Dosage: 25 MG P.O. EVERY WEEK, SHE TAKES 6 TABLETS
     Route: 048
  16. PLAQUENIL [Concomitant]
     Active Substance: HYDROXYCHLOROQUINE SULFATE
     Dosage: 200 MG, DAILY (EVERY DAY)
     Route: 048
  17. ACYCLOVIR. [Concomitant]
     Active Substance: ACYCLOVIR
     Dosage: 1 G, 3X/DAY (Q.8 HOURS )
     Route: 048
  18. RESTORIL [Concomitant]
     Active Substance: TEMAZEPAM
     Dosage: 30 MG, DAILY (EVERY DAY AT BEDTIME)
     Route: 048
  19. DALIRESP [Concomitant]
     Active Substance: ROFLUMILAST
     Dosage: 0.5 MG, DAILY (EVERY DAY)
     Route: 048
  20. ALBUTEROL. [Concomitant]
     Active Substance: ALBUTEROL
     Indication: WHEEZING
  21. HYDROCODONE/IBUPROFEN [Concomitant]
     Dosage: 10/200 MG, TWO TABLETS B.I.D
     Route: 048
  22. HYDROCORTISONE. [Concomitant]
     Active Substance: HYDROCORTISONE
     Dosage: 2.5% (Q.I.D. P.R.N)
  23. KEPPRA [Concomitant]
     Active Substance: LEVETIRACETAM
     Dosage: UNK
  24. ALPRAZOLAM. [Concomitant]
     Active Substance: ALPRAZOLAM
     Dosage: 0.5 MG, AS NEEDED (TWO TIMES DAILY AS NEEDED)
     Route: 048
     Dates: start: 20131122
  25. BACLOFEN. [Concomitant]
     Active Substance: BACLOFEN
     Dosage: 20 MG, AS NEEDED (1 (ONE) TABLET (ORAL) TWO TIMES DAILY, AS NEEDED)
     Route: 048
     Dates: start: 20140520
  26. HYDROCODONE W/ACETAMINOPHEN [Concomitant]
     Active Substance: ACETAMINOPHEN\HYDROCODONE BITARTRATE
     Indication: PAIN
     Dosage: 10-325MG,1 TABLET EVERY 4 TO 6 HOURS AS NEEDED
     Route: 048
     Dates: start: 20130926
  27. ALBUTEROL. [Concomitant]
     Active Substance: ALBUTEROL
     Indication: DYSPNOEA
     Dosage: 90 UG, UNK (ACTUATION AEROSOL 2 PUFFS INHALATION EVERY 4-6 HOURS)
  28. TIZANIDINE (TIZANIDINE) [Concomitant]
     Active Substance: TIZANIDINE
     Dosage: 4 MG, AS NEEDED (EVERY 6-8 HOURS P.R.N)
     Route: 048
  29. CHOLECALCIFEROL [Concomitant]
     Active Substance: CHOLECALCIFEROL
     Dosage: 2000 UNITS P.O. DAILY
     Route: 048
  30. XELJANZ [Suspect]
     Active Substance: TOFACITINIB CITRATE
     Indication: RHEUMATOID ARTHRITIS
     Dosage: 5 MG, 2X/DAY (BID)
     Route: 048
     Dates: start: 20140514
  31. MIST [Concomitant]
     Dosage: UNK
  32. SULFASALAZINE. [Concomitant]
     Active Substance: SULFASALAZINE
     Dosage: 500 MG, 2X/DAY (1 (ONE) TABLET (ORAL) BID FOR 30 DAYS)
     Route: 048
     Dates: start: 20140324
  33. CYMBALTA [Concomitant]
     Active Substance: DULOXETINE HYDROCHLORIDE
     Dosage: 60 MG, DAILY (EVERY DAY)
     Route: 048
  34. VISTARIL [Concomitant]
     Active Substance: HYDROXYZINE PAMOATE
     Dosage: 25 MG, AS NEEDED (EVERY 6 HOURS)
     Route: 048
     Dates: start: 20140509
  35. IPRATROPIUM [Concomitant]
     Active Substance: IPRATROPIUM
     Dosage: 500 UG, 4X/DAY (EVERY 6 HOURS)
  36. ACYCLOVIR. [Concomitant]
     Active Substance: ACYCLOVIR
     Dosage: 750 MG, 3X/DAY (Q.8 HOURS)
     Route: 042
  37. DUONEB [Concomitant]
     Active Substance: ALBUTEROL SULFATE\IPRATROPIUM BROMIDE
     Dosage: UNK, (0.5-2.5 (3)MG/3ML SOLUTION)
  38. LIDODERM [Concomitant]
     Active Substance: LIDOCAINE
     Dosage: UNK, 5% (2 (TWO) PATCH PATCH (EXTERNAL) DAILY)
     Dates: start: 20140516
  39. SULFASALAZINE. [Concomitant]
     Active Substance: SULFASALAZINE
     Dosage: 0.5 G, 2X/DAY (2 TIMES PER DAY)
     Route: 048
  40. MIRAPEX [Concomitant]
     Active Substance: PRAMIPEXOLE DIHYDROCHLORIDE
     Dosage: 0.125 MG, UNK (1 TABLET (ORAL) ONE HOUR BEFORE BEDTIME)
     Route: 048
     Dates: start: 20140120
  41. MIRAPEX [Concomitant]
     Active Substance: PRAMIPEXOLE DIHYDROCHLORIDE
     Dosage: 0.125 MG, DAILY (EVERY DAY AT BEDTIME)
     Route: 048
  42. NORCO [Concomitant]
     Active Substance: ACETAMINOPHEN\HYDROCODONE BITARTRATE
     Dosage: UNK, (10/325 MG 1-2 TABLETS EVERY 6 HOURS)
  43. PLAQUENIL [Concomitant]
     Active Substance: HYDROXYCHLOROQUINE SULFATE
     Dosage: 200 MG, 2X/DAY (B.I.D)
     Route: 048
  44. AZULFIDINE [Concomitant]
     Active Substance: SULFASALAZINE
     Dosage: 500 MG, 2X/DAY (TWO TIMES PER DAY)
  45. PRAMIPEXOLE [Concomitant]
     Active Substance: PRAMIPEXOLE
     Dosage: 0.125 MG, 1X/DAY (EVERY DAY AT BEDTIME)
     Route: 048
  46. ALPRAZOLAM. [Concomitant]
     Active Substance: ALPRAZOLAM
     Dosage: 0.5 MG, AS NEEDED (EVERY 8 HOURS AS NEEDED)
     Route: 048
  47. NABUMETONE. [Concomitant]
     Active Substance: NABUMETONE
     Dosage: 750 MG, 2X/DAY (1 TABLET (ORAL) TWO TIMES DAILY)
     Route: 048
     Dates: start: 20140120
  48. CYMBALTA [Concomitant]
     Active Substance: DULOXETINE HYDROCHLORIDE
     Dosage: 60 MG, DAILY (1 CAPSULE DR PART (ORAL) DAILY)
     Route: 048
     Dates: start: 20140120
  49. CYMBALTA [Concomitant]
     Active Substance: DULOXETINE HYDROCHLORIDE
     Dosage: 600 MG, DAILY
     Route: 048
  50. RELAFEN [Concomitant]
     Active Substance: NABUMETONE
     Dosage: 750 MG, 2X/DAY
     Route: 048
  51. VENTOLIN [Concomitant]
     Active Substance: ALBUTEROL SULFATE
     Indication: DYSPNOEA
     Dosage: UNK (TWO PUFFS INHALATION EVERY 4 HOURS)
  52. ACYCLOVIR. [Concomitant]
     Active Substance: ACYCLOVIR
     Dosage: 1000 MG, 3X/DAY (FOR 6 MONTHS)
     Route: 048

REACTIONS (26)
  - Meningoencephalitis herpetic [Fatal]
  - Clostridium difficile colitis [Fatal]
  - Anaemia [Fatal]
  - Brain oedema [Fatal]
  - Malaise [Unknown]
  - Pneumonia aspiration [Fatal]
  - Chronic obstructive pulmonary disease [Fatal]
  - Pain [Unknown]
  - Bedridden [Unknown]
  - White blood cell count increased [Unknown]
  - Hyponatraemia [Unknown]
  - Nausea [Unknown]
  - Sepsis [Fatal]
  - Ischaemic hepatitis [Fatal]
  - Ventricular tachycardia [Fatal]
  - Lumbar vertebral fracture [Unknown]
  - Cardiac arrest [Fatal]
  - Confusional state [Fatal]
  - Asthenia [Unknown]
  - Vomiting [Unknown]
  - Acute respiratory distress syndrome [Unknown]
  - Seizure [Unknown]
  - Colitis ulcerative [Fatal]
  - Dysphagia [Fatal]
  - Mental status changes [Unknown]
  - Respiratory failure [Unknown]
